FAERS Safety Report 19485910 (Version 1)
Quarter: 2021Q3

REPORT INFORMATION
  Report Type: Spontaneous
  Country: JP (occurrence: JP)
  Receive Date: 20210702
  Receipt Date: 20210702
  Transmission Date: 20211014
  Serious: Yes (Hospitalization, Other)
  Sender: FDA-Public Use
  Company Number: JP-ASTELLAS-2021JP012753

PATIENT
  Sex: Male

DRUGS (4)
  1. XTANDI [Suspect]
     Active Substance: ENZALUTAMIDE
     Indication: PRODUCT USED FOR UNKNOWN INDICATION
     Route: 048
  2. GONAX [Suspect]
     Active Substance: DEGARELIX
     Indication: PRODUCT USED FOR UNKNOWN INDICATION
     Dosage: UNK UNK, UNKNOWN FREQ.,DAYTIME
     Route: 058
     Dates: start: 20210617
  3. CASODEX [Concomitant]
     Active Substance: BICALUTAMIDE
     Indication: PRODUCT USED FOR UNKNOWN INDICATION
     Dosage: UNK UNK, UNKNOWN FREQ.
     Route: 048
  4. XTANDI [Suspect]
     Active Substance: ENZALUTAMIDE
     Route: 048

REACTIONS (13)
  - Injection site swelling [Unknown]
  - Injection site induration [Unknown]
  - Dizziness [Not Recovered/Not Resolved]
  - Cough [Unknown]
  - Thyroid cancer [Unknown]
  - Prostatic specific antigen increased [Unknown]
  - Injection site warmth [Unknown]
  - Pyrexia [Unknown]
  - Malaise [Not Recovered/Not Resolved]
  - Localised oedema [Unknown]
  - Injection site erythema [Unknown]
  - Metastases to pelvis [Unknown]
  - Inflammation [Unknown]

NARRATIVE: CASE EVENT DATE: 202104
